FAERS Safety Report 4353404-X (Version None)
Quarter: 2004Q2

REPORT INFORMATION
  Report Type: 
  Country: None (occurrence: None)
  Receive Date: 20040504
  Receipt Date: 20040423
  Transmission Date: 20050107
  Serious: Yes (Other)
  Sender: FDA-Public Use
  Company Number: 2004028404

PATIENT
  Age: 69 Year
  Sex: Female
  Weight: 81.6475 kg

DRUGS (4)
  1. LUBRIDERM DAILY UV LOTION W/SUNSCREEN (OXYBENZONE, ETHYLHEXYL P-METHOX [Suspect]
     Indication: DRY SKIN
     Dosage: UNSPECIFIED AMOUNT 2-3 TIMES,  TOPICAL
     Route: 061
     Dates: start: 20040416, end: 20040416
  2. PAROXETINE HCL [Concomitant]
  3. LEVOTHYROXINE SODIUM [Concomitant]
  4. VICODIN [Concomitant]

REACTIONS (2)
  - RASH PRURITIC [None]
  - SKIN INFECTION [None]
